FAERS Safety Report 9976786 (Version 1)
Quarter: 2014Q1

REPORT INFORMATION
  Report Type: Report from Study
  Country: US (occurrence: US)
  Receive Date: 20140306
  Receipt Date: 20140306
  Transmission Date: 20141002
  Serious: No
  Sender: FDA-Public Use
  Company Number: US-ABBVIE-13P-163-1166294-00

PATIENT
  Age: 55 Year
  Sex: Male

DRUGS (5)
  1. HUMIRA [Suspect]
     Indication: CROHN^S DISEASE
     Dosage: ON DAY 1
     Dates: start: 20130823, end: 20130823
  2. HUMIRA [Suspect]
     Dosage: ON DAY 15
  3. HUMIRA [Suspect]
     Dosage: ON DAY 29
  4. CROHN^S MEDICATION [Concomitant]
     Indication: CROHN^S DISEASE
  5. GOUT MEDICATION [Concomitant]
     Indication: GOUT

REACTIONS (2)
  - Dyspnoea [Not Recovered/Not Resolved]
  - Injection site pain [Not Recovered/Not Resolved]
